FAERS Safety Report 11688862 (Version 2)
Quarter: 2015Q4

REPORT INFORMATION
  Report Type: Spontaneous
  Country: US (occurrence: US)
  Receive Date: 20151102
  Receipt Date: 20151204
  Transmission Date: 20160304
  Serious: Yes (Hospitalization, Other)
  Sender: FDA-Public Use
  Company Number: US-PFIZER INC-2015356268

PATIENT
  Age: 57 Year
  Sex: Male
  Weight: 107 kg

DRUGS (11)
  1. LISINOPRIL. [Concomitant]
     Active Substance: LISINOPRIL
     Dosage: UNK
  2. RANEXA [Concomitant]
     Active Substance: RANOLAZINE
     Dosage: UNK
  3. LYRICA [Suspect]
     Active Substance: PREGABALIN
     Indication: DIABETIC NEUROPATHY
     Dosage: 1 DF, 1X/DAY
     Route: 048
  4. NOVOLOG [Concomitant]
     Active Substance: INSULIN ASPART
  5. TAMSULOSIN [Concomitant]
     Active Substance: TAMSULOSIN
  6. LYRICA [Suspect]
     Active Substance: PREGABALIN
     Dosage: 1 DF, 2X/DAY
     Route: 048
     Dates: end: 20151017
  7. INSULIN [Concomitant]
     Active Substance: INSULIN NOS
     Indication: DIABETES MELLITUS
     Dosage: UNK
  8. BABY ASPIRIN [Concomitant]
     Active Substance: ASPIRIN
     Dosage: 1 DF, DAILY
  9. METOPROLOL [Concomitant]
     Active Substance: METOPROLOL
  10. LYRICA [Suspect]
     Active Substance: PREGABALIN
     Dosage: 75 MG, DAILY
     Dates: start: 2012
  11. SIMVASTATIN. [Concomitant]
     Active Substance: SIMVASTATIN
     Dosage: UNK

REACTIONS (7)
  - Anger [Recovering/Resolving]
  - Suicide attempt [Recovered/Resolved]
  - Mood swings [Recovering/Resolving]
  - Agitation [Recovering/Resolving]
  - Depression [Recovering/Resolving]
  - Suicidal ideation [Recovered/Resolved]
  - Intentional product use issue [Unknown]

NARRATIVE: CASE EVENT DATE: 20151018
